FAERS Safety Report 18408409 (Version 1)
Quarter: 2020Q4

REPORT INFORMATION
  Report Type: Spontaneous
  Country: US (occurrence: US)
  Receive Date: 20201020
  Receipt Date: 20201020
  Transmission Date: 20210114
  Serious: No
  Sender: FDA-Public Use
  Company Number: US-PERRIGO-20US006450

PATIENT
  Age: 54 Year
  Sex: Female
  Weight: 49.89 kg

DRUGS (1)
  1. NICOTINE POLACRILEX [Suspect]
     Active Substance: NICOTINE
     Indication: SMOKING CESSATION THERAPY
     Dosage: 4 MG, 3 TO 4 TIMES DAILY
     Route: 002
     Dates: start: 2020, end: 2020

REACTIONS (1)
  - Tooth discolouration [Recovering/Resolving]

NARRATIVE: CASE EVENT DATE: 202004
